FAERS Safety Report 5909413-X (Version None)
Quarter: 2008Q4

REPORT INFORMATION
  Report Type: 
  Country: None (occurrence: None)
  Receive Date: 20081006
  Receipt Date: 20081001
  Transmission Date: 20090506
  Serious: Yes (Other)
  Sender: FDA-Public Use
  Company Number: TW-ROXANE LABORATORIES, INC.-2008-RO-00098RO

PATIENT
  Age: 28 Year
  Sex: Female

DRUGS (3)
  1. DIGOXIN [Suspect]
     Indication: FOETAL CARDIAC DISORDER
     Route: 015
  2. MEPERIDINE HCL [Suspect]
     Indication: SEDATION
     Route: 042
  3. TRANQUILIZER [Suspect]
     Indication: SEDATION

REACTIONS (2)
  - PREMATURE BABY [None]
  - PREMATURE LABOUR [None]
